FAERS Safety Report 5113196-3 (Version None)
Quarter: 2006Q3

REPORT INFORMATION
  Report Type: 
  Country: None (occurrence: None)
  Receive Date: 20060920
  Receipt Date: 20060901
  Transmission Date: 20061208
  Serious: Yes (Other)
  Sender: FDA-Public Use
  Company Number: US2006090001478

PATIENT
  Age: 41 Year
  Sex: Male
  Weight: 113.4 kg

DRUGS (1)
  1. ZYPREXA [Suspect]

REACTIONS (2)
  - HEPATITIS VIRAL [None]
  - PANCREATITIS [None]
